FAERS Safety Report 9482541 (Version 2)
Quarter: 2013Q3

REPORT INFORMATION
  Report Type: Spontaneous
  Country: IT (occurrence: IT)
  Receive Date: 20130828
  Receipt Date: 20130830
  Transmission Date: 20140515
  Serious: Yes (Life-Threatening)
  Sender: FDA-Public Use
  Company Number: IT-SANOFI-AVENTIS-2013SA085230

PATIENT
  Age: 33 Year
  Sex: Female

DRUGS (1)
  1. FERLIXIT [Suspect]
     Indication: PRODUCT USED FOR UNKNOWN INDICATION
     Route: 042
     Dates: start: 20130624, end: 20130624

REACTIONS (4)
  - Throat tightness [Recovered/Resolved]
  - Rash papular [Recovered/Resolved]
  - Angioedema [Recovered/Resolved]
  - Aphonia [Recovered/Resolved]
